FAERS Safety Report 4859865-1 (Version None)
Quarter: 2005Q4

REPORT INFORMATION
  Report Type: 
  Country: None (occurrence: None)
  Receive Date: 20051219
  Receipt Date: 20050406
  Transmission Date: 20060501
  Serious: Yes (Hospitalization)
  Sender: FDA-Public Use
  Company Number: 2005UW05316

PATIENT
  Age: 80 Year
  Sex: Female

DRUGS (8)
  1. CRESTOR [Suspect]
     Indication: HYPERLIPIDAEMIA
     Route: 048
     Dates: end: 20050322
  2. METOPROLOL [Concomitant]
     Indication: HYPERTENSION
     Route: 048
  3. DIOVAN [Concomitant]
     Route: 048
  4. NORVASC [Concomitant]
     Indication: HYPERTENSION
     Route: 048
  5. GLYBURIDE [Concomitant]
     Indication: DIABETES MELLITUS
     Route: 048
  6. ASPIRIN [Concomitant]
     Route: 048
  7. MULTIVITAMIN [Concomitant]
  8. DARVOCET-N 100 [Concomitant]
     Indication: ARTHRITIS

REACTIONS (1)
  - MYOSITIS [None]
